FAERS Safety Report 8513044-5 (Version None)
Quarter: 2012Q3

REPORT INFORMATION
  Report Type: 
  Country: None (occurrence: None)
  Receive Date: 20120716
  Receipt Date: 20120419
  Transmission Date: 20120928
  Serious: Yes (Other)
  Sender: FDA-Public Use
  Company Number: HU-BAXTER-2012BAX003851

PATIENT
  Age: 72 Year
  Sex: Female

DRUGS (3)
  1. DIANEAL PD-1 W/ DEXTROSE 1.5% IN PLASTIC CONTAINER [Suspect]
     Route: 033
     Dates: start: 20071228
  2. VITAMIN D [Suspect]
  3. INSULIN [Concomitant]

REACTIONS (1)
  - DIABETIC COMPLICATION [None]
